FAERS Safety Report 6428579-9 (Version None)
Quarter: 2009Q4

REPORT INFORMATION
  Report Type: 
  Country: None (occurrence: None)
  Receive Date: 20091102
  Receipt Date: 20091029
  Transmission Date: 20100525
  Serious: Yes (Death)
  Sender: FDA-Public Use
  Company Number: 1000009795

PATIENT
  Age: 65 Year
  Sex: Male

DRUGS (2)
  1. LEXAPRO [Suspect]
     Indication: DEPRESSION
     Dates: end: 20060801
  2. LEXAPRO [Suspect]
     Indication: DEPRESSION
     Dates: start: 20060801, end: 20061028

REACTIONS (1)
  - COMPLETED SUICIDE [None]
